FAERS Safety Report 5086780-3 (Version None)
Quarter: 2006Q3

REPORT INFORMATION
  Report Type: 
  Country: None (occurrence: None)
  Receive Date: 20060818
  Receipt Date: 20060803
  Transmission Date: 20061208
  Serious: Yes (Other)
  Sender: FDA-Public Use
  Company Number: 2006098629

PATIENT
  Sex: Female
  Weight: 50.8029 kg

DRUGS (2)
  1. LIPITOR [Suspect]
     Indication: BLOOD CHOLESTEROL
     Dosage: 10 MG (10 MG, 1 IN 1 D); 10 YRS AGO - ONGOING
  2. NEXIUM [Suspect]
     Indication: DUODENAL ULCER PERFORATION
     Dates: start: 20050301

REACTIONS (2)
  - DUODENAL ULCER PERFORATION [None]
  - HEADACHE [None]
